FAERS Safety Report 20137498 (Version 2)
Quarter: 2021Q4

REPORT INFORMATION
  Report Type: Spontaneous
  Country: FR (occurrence: FR)
  Receive Date: 20211201
  Receipt Date: 20211204
  Transmission Date: 20220303
  Serious: Yes (Hospitalization)
  Sender: FDA-Public Use
  Company Number: FR-CELLTRION INC.-2021FR016142

PATIENT

DRUGS (6)
  1. RITUXIMAB [Suspect]
     Active Substance: RITUXIMAB
     Indication: Chronic lymphocytic leukaemia
     Dosage: 4 DOSAGE FORM, RECEIVED 4 DOSES
     Route: 065
  2. BENDAMUSTINE [Suspect]
     Active Substance: BENDAMUSTINE
     Indication: Chronic lymphocytic leukaemia
     Dosage: 4 DOSAGE FORM, RECEIVED 4 DOSES
     Route: 065
  3. HYDROXYCHLOROQUINE [Concomitant]
     Active Substance: HYDROXYCHLOROQUINE
     Indication: COVID-19
     Dosage: UNK
     Route: 065
     Dates: start: 20200429, end: 20200507
  4. REMDESIVIR [Concomitant]
     Active Substance: REMDESIVIR
     Indication: SARS-CoV-2 viraemia
     Dosage: 100 MG, QD
     Route: 065
  5. REMDESIVIR [Concomitant]
     Active Substance: REMDESIVIR
     Dosage: 200 MG, ON DAY 1
     Route: 065
  6. COVID-19 CONVALESCENT PLASMA [Concomitant]
     Active Substance: COVID-19 CONVALESCENT PLASMA
     Indication: SARS-CoV-2 viraemia
     Dosage: 4 X 200ML
     Route: 065
     Dates: start: 20200612, end: 20200615

REACTIONS (4)
  - Immunodeficiency [Recovering/Resolving]
  - SARS-CoV-2 viraemia [Recovered/Resolved]
  - COVID-19 [Recovering/Resolving]
  - Drug ineffective for unapproved indication [Unknown]

NARRATIVE: CASE EVENT DATE: 20190101
